FAERS Safety Report 20867470 (Version 1)
Quarter: 2022Q2

REPORT INFORMATION
  Report Type: Report from Study
  Country: US (occurrence: US)
  Receive Date: 20220524
  Receipt Date: 20220524
  Transmission Date: 20220721
  Serious: Yes (Other)
  Sender: FDA-Public Use
  Company Number: US-BRISTOL-MYERS SQUIBB COMPANY-2022-039333

PATIENT
  Age: 86 Year
  Sex: Female
  Weight: 81.6 kg

DRUGS (1)
  1. REVLIMID [Suspect]
     Active Substance: LENALIDOMIDE
     Indication: Plasma cell myeloma
     Route: 048
     Dates: start: 20211127

REACTIONS (3)
  - Arthralgia [Unknown]
  - Neuralgia [Unknown]
  - Musculoskeletal pain [Unknown]
